FAERS Safety Report 17560441 (Version 1)
Quarter: 2020Q1

REPORT INFORMATION
  Report Type: Spontaneous
  Country: IT (occurrence: IT)
  Receive Date: 20200319
  Receipt Date: 20200319
  Transmission Date: 20200409
  Serious: Yes (Hospitalization)
  Sender: FDA-Public Use
  Company Number: IT-PFIZER INC-2020077752

PATIENT
  Age: 38 Year
  Sex: Male

DRUGS (64)
  1. BISOPROLOL FUMARATE. [Interacting]
     Active Substance: BISOPROLOL FUMARATE
     Indication: HYPERTENSION
  2. SELENIUM [Interacting]
     Active Substance: SELENIUM
     Indication: GLOMERULONEPHRITIS
  3. SELENIUM [Interacting]
     Active Substance: SELENIUM
     Indication: PHYTOTHERAPY
  4. TAURINE [Interacting]
     Active Substance: TAURINE
     Indication: SUPPLEMENTATION THERAPY
  5. TAURINE [Interacting]
     Active Substance: TAURINE
     Indication: HYPERTENSION
  6. LEONURUS CARDIACA [HERBALS\HOMEOPATHICS] [Interacting]
     Active Substance: HERBALS\HOMEOPATHICS
     Indication: SUPPLEMENTATION THERAPY
  7. LEONURUS CARDIAC [HERBALS\HOMEOPATHICS] [Interacting]
     Active Substance: HERBALS\HOMEOPATHICS
     Indication: GLOMERULONEPHRITIS
  8. DOXAZOSIN MESILATE [Interacting]
     Active Substance: DOXAZOSIN MESYLATE
     Indication: HYPERTENSION
     Dosage: 8 MG, 1X/DAY
  9. GLUTATHIONE [Interacting]
     Active Substance: GLUTATHIONE
     Indication: SUPPLEMENTATION THERAPY
     Dosage: UNK
  10. GLUCOSAMINE [Interacting]
     Active Substance: GLUCOSAMINE
     Indication: PHYTOTHERAPY
  11. MAGNESIUM [Interacting]
     Active Substance: MAGNESIUM
     Indication: PHYTOTHERAPY
  12. CURCUMA LONGA [Interacting]
     Active Substance: HERBALS\TURMERIC
     Indication: SUPPLEMENTATION THERAPY
  13. CURCUMA LONGA [Interacting]
     Active Substance: HERBALS\TURMERIC
     Indication: HYPERTENSION
  14. TAURINE [Interacting]
     Active Substance: TAURINE
     Indication: PHYTOTHERAPY
  15. TARAXACUM OFFICINALE [Interacting]
     Active Substance: HERBALS\TARAXACUM OFFICINALE
     Indication: SUPPLEMENTATION THERAPY
  16. ALLIUM SATIVUM (DIETARY SUPPLEMENT\HERBALS) [Interacting]
     Active Substance: DIETARY SUPPLEMENT\GARLIC\HERBALS
     Indication: PHYTOTHERAPY
  17. DIOSCOREA OPPOSITA [HERBALS\HOMEOPATHICS] [Interacting]
     Active Substance: HERBALS\HOMEOPATHICS
     Indication: GLOMERULONEPHRITIS
  18. VERRUCOSAL (SALICYLIC ACID) [Interacting]
     Active Substance: SALICYLIC ACID
     Indication: PHYTOTHERAPY
  19. ZINC. [Interacting]
     Active Substance: ZINC
     Indication: SUPPLEMENTATION THERAPY
     Dosage: UNK
  20. SELENIUM [Interacting]
     Active Substance: SELENIUM
     Indication: SUPPLEMENTATION THERAPY
     Dosage: UNK
  21. CURCUMA LONGA [Interacting]
     Active Substance: HERBALS\TURMERIC
     Indication: GLOMERULONEPHRITIS
  22. LEONURUS CARDIACA [HERBALS\HOMEOPATHICS] [Interacting]
     Active Substance: HERBALS\HOMEOPATHICS
     Indication: HYPERTENSION
  23. FUMARIA OFFICINALIS [HERBALS\HOMEOPATHICS] [Interacting]
     Active Substance: HERBALS\HOMEOPATHICS
     Indication: HYPERTENSION
  24. DOXAZOSIN MESILATE [Interacting]
     Active Substance: DOXAZOSIN MESYLATE
     Indication: GLOMERULONEPHRITIS
  25. BISOPROLOL FUMARATE. [Interacting]
     Active Substance: BISOPROLOL FUMARATE
     Indication: GLOMERULONEPHRITIS
     Dosage: 5 MG, 1X/DAY
  26. VERRUCOSAL (SALICYLIC ACID) [Interacting]
     Active Substance: SALICYLIC ACID
     Indication: GLOMERULONEPHRITIS
  27. MAGNESIUM [Interacting]
     Active Substance: MAGNESIUM
     Indication: SUPPLEMENTATION THERAPY
     Dosage: UNK
  28. CURCUMA LONGA [Interacting]
     Active Substance: HERBALS\TURMERIC
     Indication: PHYTOTHERAPY
  29. TARAXACUM OFFICINALE [Interacting]
     Active Substance: HERBALS\TARAXACUM OFFICINALE
     Indication: GLOMERULONEPHRITIS
  30. DIOSCOREA OPPOSITA [HERBALS\HOMEOPATHICS] [Interacting]
     Active Substance: HERBALS\HOMEOPATHICS
     Indication: SUPPLEMENTATION THERAPY
  31. RAMIPRIL. [Interacting]
     Active Substance: RAMIPRIL
     Indication: GLOMERULONEPHRITIS
  32. GLUTATHIONE [Interacting]
     Active Substance: GLUTATHIONE
     Indication: HYPERTENSION
  33. VERRUCOSAL (SALICYLIC ACID) [Interacting]
     Active Substance: SALICYLIC ACID
     Indication: HYPERTENSION
  34. MAGNESIUM [Interacting]
     Active Substance: MAGNESIUM
     Indication: HYPERTENSION
  35. ZINC. [Interacting]
     Active Substance: ZINC
     Indication: PHYTOTHERAPY
  36. TAURINE [Interacting]
     Active Substance: TAURINE
     Indication: GLOMERULONEPHRITIS
  37. TARAXACUM OFFICINALE [Interacting]
     Active Substance: HERBALS\TARAXACUM OFFICINALE
     Indication: PHYTOTHERAPY
  38. MAGNESIUM [Interacting]
     Active Substance: MAGNESIUM
     Indication: GLOMERULONEPHRITIS
  39. ZINC. [Interacting]
     Active Substance: ZINC
     Indication: HYPERTENSION
  40. ALLIUM SATIVUM (DIETARY SUPPLEMENT\HERBALS) [Interacting]
     Active Substance: DIETARY SUPPLEMENT\GARLIC\HERBALS
     Indication: SUPPLEMENTATION THERAPY
  41. FUMARIA OFFICINALIS [HERBALS\HOMEOPATHICS] [Interacting]
     Active Substance: HERBALS\HOMEOPATHICS
     Indication: SUPPLEMENTATION THERAPY
  42. SOJA [DIETARY SUPPLEMENT\HERBALS] [Interacting]
     Active Substance: DIETARY SUPPLEMENT\HERBALS
     Indication: HYPERTENSION
  43. SOJA [DIETARY SUPPLEMENT\HERBALS] [Interacting]
     Active Substance: DIETARY SUPPLEMENT\HERBALS
     Indication: PHYTOTHERAPY
  44. RAMIPRIL. [Suspect]
     Active Substance: RAMIPRIL
     Indication: HYPERTENSION
     Dosage: 10 MG, 1X/DAY
  45. AMLODIPINE BESILATE [Interacting]
     Active Substance: AMLODIPINE BESYLATE
     Indication: GLOMERULONEPHRITIS
     Dosage: 5 MG, 1X/DAY
  46. AMLODIPINE BESILATE [Interacting]
     Active Substance: AMLODIPINE BESYLATE
     Indication: HYPERTENSION
  47. VERRUCOSAL (SALICYLIC ACID) [Interacting]
     Active Substance: SALICYLIC ACID
     Indication: SUPPLEMENTATION THERAPY
     Dosage: UNK
  48. GLUCOSAMINE [Interacting]
     Active Substance: GLUCOSAMINE
     Indication: SUPPLEMENTATION THERAPY
     Dosage: UNK
  49. GLUCOSAMINE [Interacting]
     Active Substance: GLUCOSAMINE
     Indication: HYPERTENSION
  50. SELENIUM [Interacting]
     Active Substance: SELENIUM
     Indication: HYPERTENSION
  51. TARAXACUM OFFICINALE [Interacting]
     Active Substance: HERBALS\TARAXACUM OFFICINALE
     Indication: HYPERTENSION
  52. ALLIUM SATIVUM (DIETARY SUPPLEMENT\HERBALS) [Interacting]
     Active Substance: DIETARY SUPPLEMENT\GARLIC\HERBALS
     Indication: HYPERTENSION
  53. SOJA [DIETARY SUPPLEMENT\HERBALS] [Interacting]
     Active Substance: DIETARY SUPPLEMENT\HERBALS
     Indication: GLOMERULONEPHRITIS
  54. DIOSCOREA OPPOSITA [HERBALS\HOMEOPATHICS] [Interacting]
     Active Substance: HERBALS\HOMEOPATHICS
     Indication: PHYTOTHERAPY
  55. GLUTATHIONE [Interacting]
     Active Substance: GLUTATHIONE
     Indication: PHYTOTHERAPY
  56. GLUTATHIONE [Interacting]
     Active Substance: GLUTATHIONE
     Indication: GLOMERULONEPHRITIS
  57. GLUCOSAMINE [Interacting]
     Active Substance: GLUCOSAMINE
     Indication: GLOMERULONEPHRITIS
  58. ZINC. [Interacting]
     Active Substance: ZINC
     Indication: GLOMERULONEPHRITIS
  59. ALLIUM SATIVUM (DIETARY SUPPLEMENT\HERBALS) [Interacting]
     Active Substance: DIETARY SUPPLEMENT\GARLIC\HERBALS
     Indication: GLOMERULONEPHRITIS
  60. LEONURUS CARDIACA [HERBALS\HOMEOPATHICS] [Interacting]
     Active Substance: HERBALS\HOMEOPATHICS
     Indication: PHYTOTHERAPY
  61. FUMARIA OFFICINALIS [HERBALS\HOMEOPATHICS] [Interacting]
     Active Substance: HERBALS\HOMEOPATHICS
     Indication: GLOMERULONEPHRITIS
  62. FUMARIA OFFICINALIS [HERBALS\HOMEOPATHICS] [Interacting]
     Active Substance: HERBALS\HOMEOPATHICS
     Indication: PHYTOTHERAPY
  63. SOJA [DIETARY SUPPLEMENT\HERBALS] [Interacting]
     Active Substance: DIETARY SUPPLEMENT\HERBALS
     Indication: SUPPLEMENTATION THERAPY
  64. DIOSCOREA OPPOSITA [HERBALS\HOMEOPATHICS] [Interacting]
     Active Substance: HERBALS\HOMEOPATHICS
     Indication: HYPERTENSION

REACTIONS (3)
  - Herbal interaction [Recovered/Resolved]
  - Psychomotor skills impaired [Recovered/Resolved]
  - Cognitive disorder [Recovered/Resolved]
